FAERS Safety Report 16732328 (Version 2)
Quarter: 2019Q3

REPORT INFORMATION
  Report Type: Report from Study
  Country: GT (occurrence: GT)
  Receive Date: 20190822
  Receipt Date: 20190910
  Transmission Date: 20191005
  Serious: Yes (Other)
  Sender: FDA-Public Use
  Company Number: PHHY2019GT195477

PATIENT
  Sex: Female
  Weight: 88 kg

DRUGS (2)
  1. CALCIUM [Concomitant]
     Active Substance: CALCIUM
     Indication: CALCIUM DEFICIENCY
     Dosage: 1 DF, QD
     Route: 065
  2. EXFORGE [Suspect]
     Active Substance: AMLODIPINE BESYLATE\VALSARTAN
     Indication: HYPERTENSION
     Dosage: (AMLODIPINE 10 MG AND VALSARTAN 320 MG), QD
     Route: 065
     Dates: start: 20190810

REACTIONS (6)
  - Malaise [Unknown]
  - Stress [Unknown]
  - Blood pressure decreased [Unknown]
  - Facial paralysis [Unknown]
  - Hypertension [Recovering/Resolving]
  - Hypoaesthesia [Not Recovered/Not Resolved]
